FAERS Safety Report 9207864 (Version 1)
Quarter: 2013Q2

REPORT INFORMATION
  Report Type: Spontaneous
  Country: CA (occurrence: CA)
  Receive Date: 20130403
  Receipt Date: 20130403
  Transmission Date: 20140414
  Serious: No
  Sender: FDA-Public Use
  Company Number: CA-ASTRAZENECA-2013SE17245

PATIENT
  Age: 70 Year
  Sex: Female

DRUGS (3)
  1. SYMBICORT [Suspect]
     Indication: ASTHMA
     Dosage: UNKNOWN
     Route: 055
  2. SYMBICORT [Suspect]
     Indication: ASTHMA
     Dosage: 160 MCG/4.5 MCG, 2 PUFFS BID
     Route: 055
     Dates: start: 20130311
  3. SYMBICORT [Suspect]
     Indication: ASTHMA
     Dosage: 160 MCG/4.5 MCG, 1 PUFF BID
     Route: 055

REACTIONS (4)
  - Chest discomfort [Recovering/Resolving]
  - Agitation [Recovering/Resolving]
  - Dysphonia [Unknown]
  - Off label use [Unknown]
